FAERS Safety Report 9647781 (Version 1)
Quarter: 2013Q4

REPORT INFORMATION
  Report Type: Spontaneous
  Country: US (occurrence: US)
  Receive Date: 20131028
  Receipt Date: 20131028
  Transmission Date: 20140711
  Serious: Yes (Other)
  Sender: FDA-Public Use
  Company Number: US-SHIRE-ALL1-2013-07178

PATIENT
  Age: 6 Year
  Sex: Male

DRUGS (2)
  1. INTUNIV [Suspect]
     Indication: PRODUCT USED FOR UNKNOWN INDICATION
     Dosage: 2 MG, UNKNOWN
     Route: 048
  2. INTUNIV [Suspect]
     Dosage: UNK UNK, UNKNOWN
     Route: 048

REACTIONS (2)
  - Unresponsive to stimuli [Unknown]
  - Aggression [Unknown]
